FAERS Safety Report 24755270 (Version 1)
Quarter: 2024Q4

REPORT INFORMATION
  Report Type: Spontaneous
  Country: US (occurrence: US)
  Receive Date: 20241219
  Receipt Date: 20241219
  Transmission Date: 20250115
  Serious: Yes (Hospitalization)
  Sender: BRISTOL-MYERS SQUIBB COMPANY
  Company Number: US-BRISTOL-MYERS SQUIBB COMPANY-2024-196563

PATIENT
  Age: 45 Year
  Sex: Female

DRUGS (2)
  1. REVLIMID [Suspect]
     Active Substance: LENALIDOMIDE
     Indication: Systemic lupus erythematosus
     Route: 048
     Dates: start: 202204
  2. REVLIMID [Suspect]
     Active Substance: LENALIDOMIDE
     Indication: Cutaneous lupus erythematosus

REACTIONS (1)
  - Hospitalisation [Unknown]
